FAERS Safety Report 8792921 (Version 6)
Quarter: 2013Q3

REPORT INFORMATION
  Report Type: Report from Study
  Country: US (occurrence: US)
  Receive Date: 20120918
  Receipt Date: 20130730
  Transmission Date: 20140515
  Serious: Yes (Death, Hospitalization)
  Sender: FDA-Public Use
  Company Number: US-ACTELION-A-US2012-71043

PATIENT
  Age: 65 Year
  Sex: Female

DRUGS (3)
  1. TRACLEER [Suspect]
     Indication: PULMONARY HYPERTENSION
     Dosage: UNK
     Route: 048
     Dates: start: 20110811, end: 20130526
  2. LASIX [Concomitant]
  3. SILDENAFIL [Concomitant]

REACTIONS (6)
  - Cardio-respiratory arrest [Fatal]
  - Fall [Recovered/Resolved]
  - Cardiac disorder [Recovering/Resolving]
  - Hypertension [Recovering/Resolving]
  - Heart rate irregular [Unknown]
  - Chest pain [Recovered/Resolved]
